FAERS Safety Report 20648643 (Version 2)
Quarter: 2022Q2

REPORT INFORMATION
  Report Type: Spontaneous
  Country: US (occurrence: US)
  Receive Date: 20220329
  Receipt Date: 20220620
  Transmission Date: 20220720
  Serious: No
  Sender: FDA-Public Use
  Company Number: US-GLAXOSMITHKLINE-US2022AMR053636

PATIENT
  Sex: Female
  Weight: 147 kg

DRUGS (1)
  1. NUCALA [Suspect]
     Active Substance: MEPOLIZUMAB
     Indication: Asthma
     Dosage: UNK UNK, Z ONCE MONTHLY
     Dates: start: 202105

REACTIONS (2)
  - Asthma [Unknown]
  - Wrong technique in device usage process [Unknown]
